FAERS Safety Report 6355466-7 (Version None)
Quarter: 2009Q3

REPORT INFORMATION
  Report Type: 
  Country: None (occurrence: None)
  Receive Date: 20090914
  Receipt Date: 20090903
  Transmission Date: 20100115
  Serious: Yes (Hospitalization, Other)
  Sender: FDA-Public Use
  Company Number: US-CELGENEUS-163-20785-09071797

PATIENT
  Sex: Female

DRUGS (2)
  1. THALOMID [Suspect]
     Indication: MULTIPLE MYELOMA
     Route: 048
     Dates: start: 20090715, end: 20090701
  2. THALOMID [Suspect]
     Route: 048
     Dates: start: 20090701

REACTIONS (9)
  - ANAEMIA [None]
  - BALANCE DISORDER [None]
  - DYSKINESIA [None]
  - FATIGUE [None]
  - HYPERCALCAEMIA [None]
  - MULTIPLE MYELOMA [None]
  - RENAL FAILURE [None]
  - SOMNOLENCE [None]
  - VISUAL IMPAIRMENT [None]
